FAERS Safety Report 19019614 (Version 1)
Quarter: 2021Q1

REPORT INFORMATION
  Report Type: Spontaneous
  Country: CN (occurrence: CN)
  Receive Date: 20210316
  Receipt Date: 20210316
  Transmission Date: 20210420
  Serious: Yes (Other)
  Sender: FDA-Public Use
  Company Number: CN-BAXTER-2021BAX004808

PATIENT
  Age: 38 Year
  Sex: Female
  Weight: 49 kg

DRUGS (12)
  1. ENDOXAN [Suspect]
     Active Substance: CYCLOPHOSPHAMIDE
     Dosage: FOURTH CHEMOTHERAPY, CYCLOPHOSPHAMIDE 850 MG + NS 45 ML
     Route: 042
     Dates: start: 20201230, end: 20201230
  2. 0.9% SODIUM CHLORIDE INJECTION [Suspect]
     Active Substance: SODIUM CHLORIDE
     Dosage: NS + EPIRUBICIN HYDROCHLORIDE (DOSE RE?INTRODUCED)
     Route: 041
  3. PHARMORUBICIN [Suspect]
     Active Substance: EPIRUBICIN
     Indication: BREAST CANCER FEMALE
     Dosage: FIRST TO THIRD CHEMOTHERAPY, EPIRUBICIN HYDROCHLORIDE + NS
     Route: 041
  4. 0.9% SODIUM CHLORIDE INJECTION [Suspect]
     Active Substance: SODIUM CHLORIDE
     Dosage: FOURTH CHEMOTHERAPY, NS 45 ML + CYCLOPHOSPHAMIDE 850 MG
     Route: 042
     Dates: start: 20201230, end: 20201230
  5. 0.9% SODIUM CHLORIDE INJECTION [Suspect]
     Active Substance: SODIUM CHLORIDE
     Dosage: FOURTH CHEMOTHERAPY, NS 100 ML + EPIRUBICIN HYDROCHLORIDE 120 MG
     Route: 041
     Dates: start: 20201230, end: 20201230
  6. PHARMORUBICIN [Suspect]
     Active Substance: EPIRUBICIN
     Dosage: EPIRUBICIN HYDROCHLORIDE + NS (DOSE RE?INTRODUCED)
     Route: 041
  7. 0.9% SODIUM CHLORIDE INJECTION [Suspect]
     Active Substance: SODIUM CHLORIDE
     Indication: MEDICATION DILUTION
     Dosage: FIRST TO THIRD CHEMOTHERAPY, NS + CYCLOPHOSPHAMIDE
     Route: 042
  8. 0.9% SODIUM CHLORIDE INJECTION [Suspect]
     Active Substance: SODIUM CHLORIDE
     Dosage: FIRST TO THIRD CHEMOTHERAPY, NS + EPIRUBICIN HYDROCHLORIDE
     Route: 041
  9. PHARMORUBICIN [Suspect]
     Active Substance: EPIRUBICIN
     Dosage: FOURTH CHEMOTHERAPY, EPIRUBICIN HYDROCHLORIDE 120 MG + NS 100 ML
     Route: 041
     Dates: start: 20201230, end: 20201230
  10. 0.9% SODIUM CHLORIDE INJECTION [Suspect]
     Active Substance: SODIUM CHLORIDE
     Dosage: NS + CYCLOPHOSPHAMIDE (DOSE RE?INTRODUCED)
     Route: 042
  11. ENDOXAN [Suspect]
     Active Substance: CYCLOPHOSPHAMIDE
     Indication: BREAST CANCER FEMALE
     Dosage: FIRST TO THIRD CHEMOTHERAPY, CYCLOPHOSPHAMIDE + NS
     Route: 042
  12. ENDOXAN [Suspect]
     Active Substance: CYCLOPHOSPHAMIDE
     Dosage: CYCLOPHOSPHAMIDE + NS (DOSE RE?INTRODUCED)
     Route: 042

REACTIONS (2)
  - Leukopenia [Recovered/Resolved]
  - Agranulocytosis [Recovered/Resolved]

NARRATIVE: CASE EVENT DATE: 20210108
